FAERS Safety Report 9651859 (Version 1)
Quarter: 2013Q4

REPORT INFORMATION
  Report Type: Report from Study
  Country: CA (occurrence: CA)
  Receive Date: 20131029
  Receipt Date: 20131029
  Transmission Date: 20140711
  Serious: Yes (Other)
  Sender: FDA-Public Use
  Company Number: CA-JNJFOC-20131013676

PATIENT
  Age: 69 Year
  Sex: Female
  Weight: 58 kg

DRUGS (4)
  1. REMICADE [Suspect]
     Indication: CROHN^S DISEASE
     Dosage: 49TH INFUSION
     Route: 042
  2. REMICADE [Suspect]
     Indication: CROHN^S DISEASE
     Route: 042
  3. METHOTREXATE [Concomitant]
     Route: 065
  4. XALACOM [Concomitant]
     Route: 065

REACTIONS (1)
  - Cataract [Recovered/Resolved]
